FAERS Safety Report 5390843-2 (Version None)
Quarter: 2007Q3

REPORT INFORMATION
  Report Type: 
  Country: None (occurrence: None)
  Receive Date: 20070713
  Receipt Date: 20070626
  Transmission Date: 20080115
  Serious: No
  Sender: FDA-Public Use
  Company Number: PHRM2007FR01780

PATIENT
  Age: 45 Year
  Sex: Male

DRUGS (1)
  1. LIORESAL [Suspect]
     Dosage: INTRATHECAL
     Route: 037

REACTIONS (2)
  - INJECTION SITE ERYTHEMA [None]
  - INJECTION SITE VESICLES [None]
